FAERS Safety Report 4329740-X (Version None)
Quarter: 2004Q2

REPORT INFORMATION
  Report Type: 
  Country: None (occurrence: None)
  Receive Date: 20040401
  Receipt Date: 20040326
  Transmission Date: 20050107
  Serious: Yes (Hospitalization, Other)
  Sender: FDA-Public Use
  Company Number: US-GLAXOSMITHKLINE-A0505232A

PATIENT
  Age: 85 Year
  Sex: Male

DRUGS (3)
  1. AVANDIA [Suspect]
     Route: 048
  2. REMERON [Concomitant]
  3. UNKNOWN MEDICATION [Concomitant]

REACTIONS (1)
  - RENAL FAILURE [None]
